FAERS Safety Report 7488528-1 (Version None)
Quarter: 2011Q2

REPORT INFORMATION
  Report Type: 
  Country: None (occurrence: None)
  Receive Date: 20110518
  Receipt Date: 20110511
  Transmission Date: 20111010
  Serious: Yes (Other)
  Sender: FDA-Public Use
  Company Number: JP-MERCK-1105USA01232

PATIENT
  Age: 80 Year
  Sex: Female

DRUGS (5)
  1. AMLODIN OD [Concomitant]
     Indication: HYPERTENSION
     Route: 048
     Dates: start: 20060315
  2. OLMESARTAN MEDOXOMIL [Concomitant]
     Indication: HYPERTENSION
     Route: 048
     Dates: start: 20060315
  3. FOSAMAX [Suspect]
     Indication: OSTEOPOROSIS
     Route: 048
     Dates: start: 20041011, end: 20070514
  4. FOSAMAX [Suspect]
     Route: 048
     Dates: start: 20070514, end: 20110221
  5. GLYBURIDE [Concomitant]
     Indication: DIABETES MELLITUS
     Route: 048
     Dates: start: 20060315

REACTIONS (3)
  - EXOSTOSIS [None]
  - FEMUR FRACTURE [None]
  - PAIN IN EXTREMITY [None]
